FAERS Safety Report 14236676 (Version 2)
Quarter: 2017Q4

REPORT INFORMATION
  Report Type: Spontaneous
  Country: IN (occurrence: IN)
  Receive Date: 20171129
  Receipt Date: 20171222
  Transmission Date: 20180321
  Serious: Yes (Life-Threatening, Hospitalization, Other)
  Sender: FDA-Public Use
  Company Number: IN-JNJFOC-20171133573

PATIENT
  Age: 28 Year
  Sex: Male

DRUGS (4)
  1. OLANZAPINE. [Interacting]
     Active Substance: OLANZAPINE
     Indication: BIPOLAR DISORDER
     Route: 065
     Dates: end: 2005
  2. LITHIUM. [Interacting]
     Active Substance: LITHIUM
     Indication: BIPOLAR DISORDER
     Route: 065
     Dates: end: 2005
  3. HALOPERIDOL. [Suspect]
     Active Substance: HALOPERIDOL
     Indication: BIPOLAR DISORDER
     Route: 048
     Dates: end: 2005
  4. HALOPERIDOL. [Suspect]
     Active Substance: HALOPERIDOL
     Indication: AGITATION
     Route: 042
     Dates: start: 2005, end: 2005

REACTIONS (6)
  - Cerebellar atrophy [Unknown]
  - Neurotoxicity [Recovering/Resolving]
  - Catatonia [Recovering/Resolving]
  - Renal failure [Unknown]
  - Neuroleptic malignant syndrome [Recovered/Resolved with Sequelae]
  - Drug interaction [Recovering/Resolving]

NARRATIVE: CASE EVENT DATE: 2005
